FAERS Safety Report 11882865 (Version 2)
Quarter: 2016Q1

REPORT INFORMATION
  Report Type: Report from Study
  Country: PK (occurrence: PK)
  Receive Date: 20151231
  Receipt Date: 20160219
  Transmission Date: 20160526
  Serious: Yes (Death, Hospitalization)
  Sender: FDA-Public Use
  Company Number: PK-SA-2015SA218948

PATIENT
  Age: 61 Year
  Sex: Female
  Weight: 60 kg

DRUGS (6)
  1. LANTUS [Suspect]
     Active Substance: INSULIN GLARGINE
     Indication: DIABETES MELLITUS
     Route: 058
     Dates: start: 2006, end: 20110919
  2. LIPIGET [Concomitant]
     Indication: DYSLIPIDAEMIA
     Route: 048
     Dates: start: 2009, end: 20110929
  3. BLOKIUM [Concomitant]
     Indication: HYPERTENSION
     Route: 048
     Dates: start: 1991, end: 20110929
  4. GLUCOPHAGE [Concomitant]
     Active Substance: METFORMIN HYDROCHLORIDE
     Indication: DIABETES MELLITUS
     Route: 048
     Dates: start: 1991, end: 20110929
  5. LANTUS [Suspect]
     Active Substance: INSULIN GLARGINE
     Indication: DIABETES MELLITUS
     Route: 058
     Dates: start: 20110928, end: 20110929
  6. LISINOPRIL. [Concomitant]
     Active Substance: LISINOPRIL
     Indication: HYPERTENSION
     Route: 048
     Dates: start: 1991, end: 20110929

REACTIONS (5)
  - Restlessness [Fatal]
  - Chest pain [Recovered/Resolved]
  - Myocardial infarction [Fatal]
  - Discomfort [Recovered/Resolved]
  - Gait disturbance [Recovered/Resolved]

NARRATIVE: CASE EVENT DATE: 20110926
